FAERS Safety Report 18599725 (Version 2)
Quarter: 2021Q1

REPORT INFORMATION
  Report Type: Report from Study
  Country: US (occurrence: US)
  Receive Date: 20201210
  Receipt Date: 20210106
  Transmission Date: 20210419
  Serious: No
  Sender: FDA-Public Use
  Company Number: US-SA-2020SA354262

PATIENT

DRUGS (2)
  1. DUPILUMAB [Suspect]
     Active Substance: DUPILUMAB
     Dosage: 300 MG, QOW
     Route: 058
     Dates: start: 2020
  2. DUPILUMAB [Suspect]
     Active Substance: DUPILUMAB
     Indication: DERMATITIS ATOPIC
     Dosage: 600 MG, 1X
     Route: 058
     Dates: start: 20201106, end: 20201106

REACTIONS (6)
  - Nausea [Unknown]
  - Cough [Unknown]
  - Pyrexia [Unknown]
  - Pain [Unknown]
  - Dry eye [Unknown]
  - Viral infection [Unknown]

NARRATIVE: CASE EVENT DATE: 2020
